FAERS Safety Report 9850221 (Version 1)
Quarter: 2014Q1

REPORT INFORMATION
  Report Type: Spontaneous
  Country: US (occurrence: None)
  Receive Date: 20140127
  Receipt Date: 20140127
  Transmission Date: 20141002
  Serious: Yes (Death, Hospitalization)
  Sender: FDA-Public Use
  Company Number: None

PATIENT
  Age: 61 Year
  Sex: Female
  Weight: 91 kg

DRUGS (2)
  1. CISPLATIN [Suspect]
  2. ETOPOSIDE [Suspect]
     Indication: RESPIRATORY FAILURE

REACTIONS (4)
  - Respiratory failure [None]
  - Pneumonitis [None]
  - Traumatic lung injury [None]
  - Interstitial lung disease [None]
